FAERS Safety Report 16737886 (Version 3)
Quarter: 2020Q1

REPORT INFORMATION
  Report Type: Report from Study
  Country: US (occurrence: US)
  Receive Date: 20190824
  Receipt Date: 20200211
  Transmission Date: 20200409
  Serious: Yes (Hospitalization, Other)
  Sender: FDA-Public Use
  Company Number: US-AMGEN-USACT2019133790

PATIENT
  Age: 67 Year
  Sex: Male

DRUGS (1)
  1. DARBEPOETIN ALFA [Suspect]
     Active Substance: DARBEPOETIN ALFA
     Indication: ANAEMIA
     Dosage: 45 MICROGRAM, Q4WK
     Route: 058

REACTIONS (1)
  - Cardiac arrest [Recovering/Resolving]

NARRATIVE: CASE EVENT DATE: 20190722
